FAERS Safety Report 4395293-3 (Version None)
Quarter: 2004Q3

REPORT INFORMATION
  Report Type: 
  Country: None (occurrence: None)
  Receive Date: 20040707
  Receipt Date: 20040618
  Transmission Date: 20050211
  Serious: Yes (Hospitalization)
  Sender: FDA-Public Use
  Company Number: DSA_24631_2004

PATIENT
  Age: 52 Year
  Sex: Male

DRUGS (6)
  1. DILTIAZEM [Suspect]
     Indication: HYPERTENSION
     Dosage: 120 MG Q DAY PO  A FEW MONTHS
     Route: 048
     Dates: end: 20040528
  2. SORTIS [Suspect]
     Indication: HYPERLIPIDAEMIA
     Dosage: 10 MG Q DAY PO  A FEW MONTHS
     Route: 048
     Dates: end: 20040528
  3. INSULATARD NPH HUMAN [Suspect]
     Indication: DIABETES MELLITUS
     Dosage: 28 IU Q DAY SC  A FEW MONTHS
     Route: 058
  4. INSULATARD NPH HUMAN [Suspect]
     Indication: DIABETES MELLITUS
  5. RENITEN [Concomitant]
  6. ASPIRIN [Concomitant]

REACTIONS (6)
  - BLOOD INSULIN INCREASED [None]
  - DEPRESSED LEVEL OF CONSCIOUSNESS [None]
  - DRUG INTERACTION [None]
  - HAEMOGLOBIN DECREASED [None]
  - HYPOGLYCAEMIA [None]
  - RHABDOMYOLYSIS [None]
